FAERS Safety Report 20263887 (Version 1)
Quarter: 2021Q4

REPORT INFORMATION
  Report Type: Spontaneous
  Country: US (occurrence: None)
  Receive Date: 20211230
  Receipt Date: 20211230
  Transmission Date: 20220303
  Serious: Yes (Life-Threatening, Hospitalization, Disabling, Other)
  Sender: FDA-Public Use
  Company Number: None

PATIENT
  Age: 71 Year
  Sex: Female
  Weight: 60.75 kg

DRUGS (2)
  1. BENDAMUSTINE [Suspect]
     Active Substance: BENDAMUSTINE
     Indication: Follicular lymphoma
     Dates: start: 20200113, end: 20200428
  2. RITUXIMAB [Suspect]
     Active Substance: RITUXIMAB

REACTIONS (3)
  - Hepatitis B [None]
  - Acute hepatic failure [None]
  - Liver transplant [None]

NARRATIVE: CASE EVENT DATE: 20200726
